FAERS Safety Report 10174447 (Version 1)
Quarter: 2014Q2

REPORT INFORMATION
  Report Type: Spontaneous
  Country: CH (occurrence: CH)
  Receive Date: 20140515
  Receipt Date: 20140515
  Transmission Date: 20141212
  Serious: Yes (Hospitalization)
  Sender: FDA-Public Use
  Company Number: CH-ASTRAZENECA-2014SE31284

PATIENT
  Age: 55 Year
  Sex: Female

DRUGS (9)
  1. TENORMIN [Suspect]
     Route: 048
     Dates: end: 20140401
  2. NAVELBINE [Suspect]
     Indication: INVASIVE DUCTAL BREAST CARCINOMA
     Route: 051
     Dates: start: 201401
  3. NORVASC [Suspect]
     Route: 048
     Dates: end: 20140401
  4. METFIN [Concomitant]
     Route: 065
  5. DIAMICRON [Concomitant]
     Route: 065
  6. SIMVASTATIN [Concomitant]
     Route: 048
  7. SERETIDE DISCUS [Concomitant]
     Route: 065
  8. HERCEPTIN [Concomitant]
     Indication: INVASIVE DUCTAL BREAST CARCINOMA
     Route: 065
     Dates: start: 201401
  9. PERJETA [Concomitant]
     Indication: INVASIVE DUCTAL BREAST CARCINOMA
     Route: 048
     Dates: start: 201401

REACTIONS (2)
  - Presyncope [Recovered/Resolved]
  - Paraesthesia [Recovered/Resolved]
